FAERS Safety Report 5573052-3 (Version None)
Quarter: 2007Q4

REPORT INFORMATION
  Report Type: 
  Country: None (occurrence: None)
  Receive Date: 20071224
  Receipt Date: 20071214
  Transmission Date: 20080405
  Serious: Yes (Hospitalization)
  Sender: FDA-Public Use
  Company Number: BR-ROCHE-537708

PATIENT
  Age: 3 Year
  Sex: Female
  Weight: 14 kg

DRUGS (1)
  1. RIVOTRIL [Suspect]
     Indication: DRUG USE FOR UNKNOWN INDICATION
     Dosage: THE PATIENT TOOK 1 OR 2 MG OF CLONAZEPAM
     Route: 048
     Dates: start: 20071214, end: 20071214

REACTIONS (6)
  - AGITATION [None]
  - DIZZINESS [None]
  - EYELID PTOSIS [None]
  - MEDICATION ERROR [None]
  - PYREXIA [None]
  - SOMNOLENCE [None]
